FAERS Safety Report 7153846-3 (Version None)
Quarter: 2010Q4

REPORT INFORMATION
  Report Type: 
  Country: None (occurrence: None)
  Receive Date: 20101213
  Receipt Date: 20101026
  Transmission Date: 20110411
  Serious: Yes (Other)
  Sender: FDA-Public Use
  Company Number: US-ABBOTT-10P-163-0678527-00

PATIENT
  Sex: Female
  Weight: 68.554 kg

DRUGS (1)
  1. MERIDIA [Suspect]
     Indication: DEPRESSION
     Dates: start: 20040101

REACTIONS (1)
  - CHOLELITHIASIS [None]
